FAERS Safety Report 25126224 (Version 1)
Quarter: 2025Q1

REPORT INFORMATION
  Report Type: Spontaneous
  Country: US (occurrence: US)
  Receive Date: 20250326
  Receipt Date: 20250326
  Transmission Date: 20250409
  Serious: No
  Sender: GALPHARM INTERNATIONAL
  Company Number: US-PERRIGO-25US002616

PATIENT
  Age: 66 Year
  Sex: Male
  Weight: 81.633 kg

DRUGS (3)
  1. NASONEX [Suspect]
     Active Substance: MOMETASONE FUROATE
     Indication: Rhinitis allergic
     Route: 045
     Dates: start: 20220317
  2. NASONEX [Suspect]
     Active Substance: MOMETASONE FUROATE
     Route: 045
     Dates: start: 20250203
  3. ELIQUIS [Concomitant]
     Active Substance: APIXABAN
     Indication: Blood disorder
     Route: 065
     Dates: start: 202412

REACTIONS (2)
  - Lymphadenopathy [Not Recovered/Not Resolved]
  - Incorrect product administration duration [Not Recovered/Not Resolved]

NARRATIVE: CASE EVENT DATE: 20220324
